FAERS Safety Report 5266197-9 (Version None)
Quarter: 2007Q1

REPORT INFORMATION
  Report Type: 
  Country: None (occurrence: None)
  Receive Date: 20070315
  Receipt Date: 20070313
  Transmission Date: 20070707
  Serious: Yes (Hospitalization)
  Sender: FDA-Public Use
  Company Number: US-GLAXOSMITHKLINE-A0600978A

PATIENT
  Age: 69 Year
  Sex: Male
  Weight: 70.9 kg

DRUGS (1)
  1. AVANDIA [Suspect]
     Route: 048
     Dates: start: 20041001

REACTIONS (9)
  - ANGINA UNSTABLE [None]
  - BLADDER CANCER [None]
  - COLON NEOPLASM [None]
  - CORONARY ARTERY DISEASE [None]
  - COUGH [None]
  - HAEMATURIA [None]
  - MICTURITION URGENCY [None]
  - NON-SMALL CELL LUNG CANCER [None]
  - POLLAKIURIA [None]
